FAERS Safety Report 7410170-9 (Version None)
Quarter: 2011Q2

REPORT INFORMATION
  Report Type: 
  Country: None (occurrence: None)
  Receive Date: 20110412
  Receipt Date: 20110405
  Transmission Date: 20111010
  Serious: Yes (Death)
  Sender: FDA-Public Use
  Company Number: CN-GENZYME-CLOF-1001541

PATIENT

DRUGS (2)
  1. ARA-C [Suspect]
     Indication: ACUTE MYELOID LEUKAEMIA
     Dosage: 1-2  G/M2, QDX5; STARTED 4 HOURS AFTER CLOFARABINE INFUSION
     Route: 042
  2. CLOFARABINE [Suspect]
     Indication: ACUTE MYELOID LEUKAEMIA
     Dosage: 40 MG/M2, QDX5
     Route: 042

REACTIONS (1)
  - ACUTE MYELOID LEUKAEMIA [None]
